FAERS Safety Report 6291852-1 (Version None)
Quarter: 2009Q3

REPORT INFORMATION
  Report Type: 
  Country: None (occurrence: None)
  Receive Date: 20090730
  Receipt Date: 20090722
  Transmission Date: 20100115
  Serious: Yes (Other)
  Sender: FDA-Public Use
  Company Number: CA-MERCK-0907CAN00113

PATIENT
  Age: 34 Year
  Sex: Female
  Weight: 67 kg

DRUGS (3)
  1. SINGULAIR [Suspect]
     Route: 048
  2. BUDESONIDE AND FORMOTEROL FUMARATE [Concomitant]
     Route: 065
  3. DROSPIRENONE AND ETHINYL ESTRADIOL [Concomitant]
     Route: 065

REACTIONS (21)
  - AMNESIA [None]
  - ANGER [None]
  - APATHY [None]
  - ARTHRALGIA [None]
  - ARTHRITIS [None]
  - BACK PAIN [None]
  - BRUXISM [None]
  - CLUSTER HEADACHE [None]
  - CONFUSIONAL STATE [None]
  - DEPRESSION [None]
  - DRY EYE [None]
  - DRY MOUTH [None]
  - FATIGUE [None]
  - HYPOAESTHESIA [None]
  - IMPAIRED HEALING [None]
  - IRRITABILITY [None]
  - LETHARGY [None]
  - LIP DRY [None]
  - MOOD SWINGS [None]
  - PARAESTHESIA [None]
  - WEIGHT INCREASED [None]
